FAERS Safety Report 17487210 (Version 1)
Quarter: 2020Q1

REPORT INFORMATION
  Report Type: Spontaneous
  Country: US (occurrence: US)
  Receive Date: 20200219
  Receipt Date: 20200219
  Transmission Date: 20200409
  Serious: Yes (Life-Threatening, Hospitalization, Disabling, Other)
  Sender: FDA-Public Use
  Company Number: None

PATIENT
  Age: 80 Year
  Sex: Male
  Weight: 106.59 kg

DRUGS (21)
  1. OZEMPIC [Suspect]
     Active Substance: SEMAGLUTIDE
     Indication: TYPE 2 DIABETES MELLITUS
     Dosage: ?          OTHER ROUTE:INJECTION?
     Dates: start: 201912, end: 20200101
  2. PREMIDONE [Concomitant]
  3. FLUOXITINE HCL [Concomitant]
  4. ATROVASTATIN [Concomitant]
     Active Substance: ATORVASTATIN CALCIUM
  5. FISH OIL 1000 MG [Concomitant]
  6. PANTOPRAZOL [Concomitant]
     Active Substance: PANTOPRAZOLE SODIUM
  7. MECLIZINE [Concomitant]
     Active Substance: MECLIZINE HYDROCHLORIDE
  8. FERROUS SULFATE. [Concomitant]
     Active Substance: FERROUS SULFATE
  9. AMLODIPINE BESYLATE. [Concomitant]
     Active Substance: AMLODIPINE BESYLATE
  10. ASPIRIN 81MG [Concomitant]
     Active Substance: ASPIRIN
  11. CALCIUM CITRATE/ MAG/ ZINC/ D3 [Concomitant]
  12. CREON [Concomitant]
     Active Substance: PANCRELIPASE AMYLASE\PANCRELIPASE LIPASE\PANCRELIPASE PROTEASE
  13. QUNOL LQUID COQ10 [Concomitant]
  14. LACTOBACILLUS ACIDOPHILUS [Concomitant]
     Active Substance: LACTOBACILLUS ACIDOPHILUS
  15. HCTZ [Concomitant]
     Active Substance: HYDROCHLOROTHIAZIDE
  16. DOXAZOCIN [Concomitant]
     Active Substance: DOXAZOSIN MESYLATE
  17. D3 5000 IU [Concomitant]
  18. LANTUS [Concomitant]
     Active Substance: INSULIN GLARGINE
  19. MATURE VITAMINS [Concomitant]
  20. QERNOL TURMERIC [Concomitant]
  21. TYLENOL [Concomitant]
     Active Substance: ACETAMINOPHEN

REACTIONS (6)
  - Depression [None]
  - Intestinal ulcer [None]
  - Pancreatitis [None]
  - Fall [None]
  - Asthenia [None]
  - Back pain [None]

NARRATIVE: CASE EVENT DATE: 20191231
